FAERS Safety Report 18665115 (Version 1)
Quarter: 2020Q4

REPORT INFORMATION
  Report Type: Spontaneous
  Country: JP (occurrence: JP)
  Receive Date: 20201225
  Receipt Date: 20201225
  Transmission Date: 20210114
  Serious: Yes (Hospitalization)
  Sender: FDA-Public Use
  Company Number: JP-LUPIN PHARMACEUTICALS INC.-2020-08556

PATIENT
  Age: 69 Year
  Sex: Female
  Weight: 31 kg

DRUGS (10)
  1. OCTREOTIDE. [Suspect]
     Active Substance: OCTREOTIDE
     Dosage: 150 MICROGRAM
     Route: 065
  2. OCTREOTIDE. [Suspect]
     Active Substance: OCTREOTIDE
     Dosage: 100 MICROGRAM
     Route: 065
  3. OCTREOTIDE. [Suspect]
     Active Substance: OCTREOTIDE
     Dosage: 175 MICROGRAM
     Route: 065
  4. PREDNISOLONE. [Suspect]
     Active Substance: PREDNISOLONE
     Indication: SYSTEMIC LUPUS ERYTHEMATOSUS
     Dosage: 30 MILLIGRAM, QD
     Route: 065
  5. SULFAMETHOXAZOLE AND TRIMETHOPRIM [Suspect]
     Active Substance: SULFAMETHOXAZOLE\TRIMETHOPRIM
     Indication: ANTIBIOTIC PROPHYLAXIS
     Dosage: UNK (CONTAINED 80MG OF TRIMETHOPRIM; SCHEDULED FOR ONE YEAR)
     Route: 065
  6. PREDNISOLONE. [Suspect]
     Active Substance: PREDNISOLONE
     Dosage: 40 MILLIGRAM, QD
     Route: 042
  7. OCTREOTIDE. [Suspect]
     Active Substance: OCTREOTIDE
     Indication: INSULINOMA
     Dosage: 20 MILLIGRAM (LONG ACTING RELEASE)
     Route: 065
  8. OCTREOTIDE. [Suspect]
     Active Substance: OCTREOTIDE
     Dosage: 75 MICROGRAM
     Route: 065
  9. OCTREOTIDE. [Suspect]
     Active Substance: OCTREOTIDE
     Dosage: 50 MICROGRAM
     Route: 065
  10. OCTREOTIDE. [Suspect]
     Active Substance: OCTREOTIDE
     Dosage: 125 MICROGRAM
     Route: 065

REACTIONS (1)
  - Hypoglycaemia [Recovered/Resolved]
